FAERS Safety Report 22598616 (Version 1)
Quarter: 2023Q2

REPORT INFORMATION
  Report Type: Spontaneous
  Country: HU (occurrence: HU)
  Receive Date: 20230614
  Receipt Date: 20230614
  Transmission Date: 20230721
  Serious: Yes (Life-Threatening, Hospitalization, Disabling, Other)
  Sender: FDA-Public Use
  Company Number: None

PATIENT
  Age: 32 Year
  Sex: Female
  Weight: 70 kg

DRUGS (2)
  1. KENALOG [Suspect]
     Active Substance: TRIAMCINOLONE ACETONIDE
     Indication: Ankle fracture
     Route: 014
     Dates: start: 20200722, end: 20200928
  2. MARCAIN + ADRENALIN [Concomitant]
     Indication: Synovectomy
     Route: 014
     Dates: start: 20200928, end: 20200928

REACTIONS (1)
  - Septic arthritis staphylococcal [Recovered/Resolved with Sequelae]

NARRATIVE: CASE EVENT DATE: 20201019
